FAERS Safety Report 8521724-0 (Version None)
Quarter: 2012Q3

REPORT INFORMATION
  Report Type: 
  Country: None (occurrence: None)
  Receive Date: 20120719
  Receipt Date: 20120712
  Transmission Date: 20120928
  Serious: Yes (Other)
  Sender: FDA-Public Use
  Company Number: PHHY2012FR060001

PATIENT
  Age: 65 Year
  Sex: Female

DRUGS (10)
  1. DIAZEPAM [Suspect]
     Dosage: 40 MG, DAILY DOSE
  2. VENLAFAXINE HYDROCHOLRIDE [Concomitant]
     Dosage: 225 MG, PER DAY
  3. TAMOXIFEN CITRATE [Concomitant]
     Dosage: 20 MG, PER DAY
  4. DIAZEPAM [Suspect]
     Dosage: 30 MG,  DAILY DOSE
  5. ACAMPROSATE [Concomitant]
     Dosage: 1332 MG, PER DAY
  6. TRAMADOL HYDROCHLORIDE [Concomitant]
     Indication: BONE PAIN
     Dosage: 50 MG, PER DAY
  7. DIAZEPAM [Suspect]
     Dosage: 40 MG, DAILY DOSE
  8. TRAMADOL HYDROCHLORIDE [Concomitant]
     Indication: ARTHRITIS
  9. DIAZEPAM [Suspect]
     Dosage: 40 MG, DAILY DOSE
  10. DIAZEPAM [Suspect]
     Dosage: 10 MG, DAILY DOSE

REACTIONS (13)
  - CATATONIA [None]
  - STEREOTYPY [None]
  - DISORIENTATION [None]
  - AUTONOMIC NERVOUS SYSTEM IMBALANCE [None]
  - PANIC ATTACK [None]
  - VERBIGERATION [None]
  - POSTURING [None]
  - NEGATIVISM [None]
  - ANXIETY DISORDER [None]
  - MUSCLE RIGIDITY [None]
  - PSYCHOMOTOR HYPERACTIVITY [None]
  - AKINESIA [None]
  - MUTISM [None]
